FAERS Safety Report 7271568-5 (Version None)
Quarter: 2011Q1

REPORT INFORMATION
  Report Type: 
  Country: None (occurrence: None)
  Receive Date: 20110203
  Receipt Date: 20110124
  Transmission Date: 20110831
  Serious: Yes (Death, Hospitalization)
  Sender: FDA-Public Use
  Company Number: DE-JNJFOC-20101108820

PATIENT
  Age: 8 Decade
  Sex: Male
  Weight: 80 kg

DRUGS (2)
  1. REOPRO [Suspect]
     Route: 042
  2. REOPRO [Suspect]
     Indication: MYOCARDIAL INFARCTION
     Route: 042

REACTIONS (4)
  - CARDIOGENIC SHOCK [None]
  - VENTRICULAR FIBRILLATION [None]
  - CORONARY ARTERY THROMBOSIS [None]
  - ATRIAL FIBRILLATION [None]
